FAERS Safety Report 6908135-6 (Version None)
Quarter: 2010Q3

REPORT INFORMATION
  Report Type: 
  Country: None (occurrence: None)
  Receive Date: 20100805
  Receipt Date: 20100729
  Transmission Date: 20110219
  Serious: Yes (Disabling, Other)
  Sender: FDA-Public Use
  Company Number: US-SANOFI-AVENTIS-2010SA045569

PATIENT
  Age: 51 Year
  Sex: Female
  Weight: 97.05 kg

DRUGS (17)
  1. PLAVIX [Suspect]
     Indication: STENT PLACEMENT
     Route: 065
     Dates: start: 20100501, end: 20100723
  2. PLAVIX [Suspect]
     Indication: CORONARY ARTERY OCCLUSION
     Route: 065
     Dates: start: 20100501, end: 20100723
  3. COLCHICINE [Concomitant]
  4. CRESTOR [Concomitant]
  5. ASPIRIN [Concomitant]
  6. NEXIUM [Concomitant]
  7. CARVEDILOL [Concomitant]
  8. SERTRALINE HYDROCHLORIDE [Concomitant]
  9. POTASSIUM [Concomitant]
  10. RANOLAZINE [Concomitant]
  11. ZETIA [Concomitant]
  12. ARICEPT [Concomitant]
  13. VERAPAMIL [Concomitant]
  14. LORATADINE [Concomitant]
  15. TRAZODONE [Concomitant]
  16. ANTIDEPRESSANTS [Concomitant]
  17. ALL OTHER THERAPEUTIC PRODUCTS [Concomitant]

REACTIONS (3)
  - ACTIVITIES OF DAILY LIVING IMPAIRED [None]
  - FEELING ABNORMAL [None]
  - MOBILITY DECREASED [None]
